FAERS Safety Report 15538856 (Version 5)
Quarter: 2020Q3

REPORT INFORMATION
  Report Type: Spontaneous
  Country: JP (occurrence: JP)
  Receive Date: 20181022
  Receipt Date: 20200721
  Transmission Date: 20201102
  Serious: Yes (Other)
  Sender: FDA-Public Use
  Company Number: JP-GLAXOSMITHKLINE-JP2018JPN180268

PATIENT

DRUGS (7)
  1. VIBRAMYCIN [Concomitant]
     Active Substance: DOXYCYCLINE
     Indication: ACNE
     Dosage: UNK
     Dates: start: 20180605, end: 20180703
  2. DUAC GEL [Suspect]
     Active Substance: BENZOYL PEROXIDE\CLINDAMYCIN PHOSPHATE
     Indication: ACNE
     Dosage: ADEQUATE AMOUNT, QD
     Route: 050
     Dates: start: 20180703, end: 20180713
  3. BIOFERMIN?R TABLETS (JAPAN) [Concomitant]
     Indication: ACNE
     Dosage: 1 DF, TID
     Dates: start: 20180703, end: 20180713
  4. ACUATIM CREAM [Concomitant]
     Indication: ACNE
     Dosage: UNK
     Dates: start: 20180605, end: 20180702
  5. RINDERON [Concomitant]
     Indication: ACNE
     Dosage: ADEQUATE AMOUNT, QD
     Dates: start: 20180703, end: 20180713
  6. RINDERON [Concomitant]
     Dosage: ADEQUATE AMOUNT, BID
     Dates: start: 20180714, end: 20180717
  7. CEFCAPENE PIVOXIL HYDROCHLORIDE HYDRATE [Concomitant]
     Active Substance: CEFCAPENE PIVOXIL HYDROCHLORIDE HYDRATE
     Dosage: 100 MG, TID
     Dates: start: 20180717, end: 20180720

REACTIONS (10)
  - Pyrexia [Recovered/Resolved]
  - Scab [Unknown]
  - Erythema [Recovering/Resolving]
  - Face oedema [Recovered/Resolved]
  - Skin exfoliation [Not Recovered/Not Resolved]
  - Swelling face [Recovering/Resolving]
  - C-reactive protein increased [Unknown]
  - Dermatitis contact [Recovering/Resolving]
  - Infection [Unknown]
  - Rash papular [Unknown]

NARRATIVE: CASE EVENT DATE: 20180713
